FAERS Safety Report 4314987-9 (Version None)
Quarter: 2004Q1

REPORT INFORMATION
  Report Type: 
  Country: None (occurrence: None)
  Receive Date: 20040310
  Receipt Date: 20040310
  Transmission Date: 20041129
  Serious: Yes (Life-Threatening, Hospitalization)
  Sender: FDA-Public Use
  Company Number: None

PATIENT
  Age: 18 Year
  Sex: Male
  Weight: 145.4 kg

DRUGS (5)
  1. CYTARABINE [Suspect]
     Indication: ACUTE LYMPHOCYTIC LEUKAEMIA
     Dosage: 6480 MG( 3 GM/M2) IV OVER 3 HRS Q 3 H X 4 DOSES [4TH DOSE HELD ON 3/8/04]
     Route: 042
     Dates: start: 20040306
  2. CYTARABINE [Suspect]
     Indication: LEUKAEMIA RECURRENT
     Dosage: 6480 MG( 3 GM/M2) IV OVER 3 HRS Q 3 H X 4 DOSES [4TH DOSE HELD ON 3/8/04]
     Route: 042
     Dates: start: 20040306
  3. CYTARABINE [Suspect]
     Indication: ACUTE LYMPHOCYTIC LEUKAEMIA
     Dosage: 6480 MG( 3 GM/M2) IV OVER 3 HRS Q 3 H X 4 DOSES [4TH DOSE HELD ON 3/8/04]
     Route: 042
     Dates: start: 20040307
  4. CYTARABINE [Suspect]
     Indication: LEUKAEMIA RECURRENT
     Dosage: 6480 MG( 3 GM/M2) IV OVER 3 HRS Q 3 H X 4 DOSES [4TH DOSE HELD ON 3/8/04]
     Route: 042
     Dates: start: 20040307
  5. CYTARABINE [Suspect]

REACTIONS (3)
  - AGGRESSION [None]
  - CONFUSIONAL STATE [None]
  - CONVULSION [None]
